FAERS Safety Report 4658701-6 (Version None)
Quarter: 2005Q2

REPORT INFORMATION
  Report Type: 
  Country: None (occurrence: None)
  Receive Date: 20050509
  Receipt Date: 20050425
  Transmission Date: 20051028
  Serious: Yes (Other)
  Sender: FDA-Public Use
  Company Number: DSA_26308_2005

PATIENT
  Age: 44 Year
  Sex: Female

DRUGS (1)
  1. TAVOR [Suspect]
     Dosage: 34 MG ONCE PO
     Route: 048
     Dates: start: 20050409, end: 20050409

REACTIONS (3)
  - DEPRESSED LEVEL OF CONSCIOUSNESS [None]
  - DRUG ABUSER [None]
  - TACHYCARDIA [None]
